FAERS Safety Report 21621754 (Version 1)
Quarter: 2022Q4

REPORT INFORMATION
  Report Type: Report from Study
  Country: US (occurrence: US)
  Receive Date: 20221121
  Receipt Date: 20221121
  Transmission Date: 20230113
  Serious: Yes (Other)
  Sender: FDA-Public Use
  Company Number: US-MYLANLABS-2022M1128031

PATIENT
  Age: 61 Year
  Sex: Female
  Weight: 104.33 kg

DRUGS (2)
  1. GLATIRAMER ACETATE [Suspect]
     Active Substance: GLATIRAMER ACETATE
     Indication: Relapsing-remitting multiple sclerosis
     Dosage: 40 MILLIGRAM, Q3W
     Route: 058
  2. GABAPENTIN [Concomitant]
     Active Substance: GABAPENTIN
     Route: 065

REACTIONS (13)
  - Seizure [Unknown]
  - Paralysis [Unknown]
  - Facial paralysis [Unknown]
  - Feeling hot [Unknown]
  - Injection site reaction [Unknown]
  - Palpitations [Unknown]
  - Dyspnoea [Unknown]
  - Pain in extremity [Unknown]
  - Facial pain [Unknown]
  - Pain in jaw [Unknown]
  - Neck pain [Unknown]
  - Fatigue [Unknown]
  - Sleep disorder [Unknown]

NARRATIVE: CASE EVENT DATE: 20221008
